FAERS Safety Report 4681235-X (Version None)
Quarter: 2005Q2

REPORT INFORMATION
  Report Type: 
  Country: None (occurrence: None)
  Receive Date: 20050603
  Receipt Date: 20050525
  Transmission Date: 20051028
  Serious: Yes (Other)
  Sender: FDA-Public Use
  Company Number: US-JNJFOC-20050507291

PATIENT
  Age: 70 Year
  Sex: Female

DRUGS (4)
  1. DURAGESIC-100 [Suspect]
     Route: 062
  2. VICODIN [Concomitant]
  3. VICODIN [Concomitant]
     Indication: PAIN
  4. TRANZINE [Concomitant]
     Indication: EPILEPSY
     Route: 049

REACTIONS (9)
  - ABDOMINAL PAIN [None]
  - APPLICATION SITE PAIN [None]
  - APPLICATION SITE REACTION [None]
  - CONSTIPATION [None]
  - DRUG WITHDRAWAL SYNDROME [None]
  - FAECALOMA [None]
  - HYPERHIDROSIS [None]
  - NERVE DEGENERATION [None]
  - PETIT MAL EPILEPSY [None]
